FAERS Safety Report 6328783-4 (Version None)
Quarter: 2009Q3

REPORT INFORMATION
  Report Type: 
  Country: None (occurrence: None)
  Receive Date: 20090826
  Receipt Date: 20090824
  Transmission Date: 20100115
  Serious: Yes (Hospitalization)
  Sender: FDA-Public Use
  Company Number: AU-BRISTOL-MYERS SQUIBB COMPANY-14235899

PATIENT
  Age: 48 Year
  Sex: Female

DRUGS (4)
  1. ABATACEPT [Suspect]
     Indication: PSORIATIC ARTHROPATHY
     Dosage: 1 DOSAGE FORM = 234MG/500MG
     Route: 042
     Dates: start: 20080421
  2. NIFEDIPINE [Concomitant]
     Route: 048
     Dates: start: 20070501
  3. PANTOPRAZOLE SODIUM [Concomitant]
     Route: 048
     Dates: start: 20020101
  4. NORDETTE-28 [Concomitant]
     Route: 048
     Dates: start: 20070501

REACTIONS (1)
  - GASTROENTERITIS [None]
